FAERS Safety Report 18177026 (Version 2)
Quarter: 2020Q3

REPORT INFORMATION
  Report Type: Report from Study
  Country: None (occurrence: CZ)
  Receive Date: 20200820
  Receipt Date: 20200923
  Transmission Date: 20201103
  Serious: Yes (Hospitalization, Other)
  Sender: FDA-Public Use
  Company Number: CZ-ABBVIE-20P-217-3524488-00

PATIENT
  Age: 74 Year
  Sex: Male

DRUGS (17)
  1. VENETOCLAX. [Suspect]
     Active Substance: VENETOCLAX
     Dosage: 27 JUL 2020 MOST RECENT DOSE PRIOR TO AE
     Route: 048
     Dates: start: 20141229, end: 20170102
  2. VENETOCLAX. [Suspect]
     Active Substance: VENETOCLAX
     Dosage: 27 JUL 2020 MOST RECENT DOSE PRIOR TO AE
     Route: 048
     Dates: start: 20190913, end: 20190919
  3. RITUXIMAB. [Suspect]
     Active Substance: RITUXIMAB
     Route: 042
     Dates: end: 20200228
  4. VENETOCLAX. [Suspect]
     Active Substance: VENETOCLAX
     Dosage: 27 JUL 2020 MOST RECENT DOSE PRIOR TO AE
     Route: 048
     Dates: start: 20190927, end: 20191003
  5. VENETOCLAX. [Suspect]
     Active Substance: VENETOCLAX
     Dosage: 27 JUL 2020 MOST RECENT DOSE PRIOR TO AE
     Route: 048
     Dates: end: 20200727
  6. PRESTARIUM [Concomitant]
     Active Substance: PERINDOPRIL
     Indication: HYPERTENSION
     Dates: start: 20141230
  7. VENETOCLAX. [Suspect]
     Active Substance: VENETOCLAX
     Dosage: 27 JUL 2020 MOST RECENT DOSE PRIOR TO AE
     Route: 048
     Dates: start: 20141222, end: 20141228
  8. RITUXIMAB. [Suspect]
     Active Substance: RITUXIMAB
     Indication: CHRONIC LYMPHOCYTIC LEUKAEMIA
     Dosage: D1C1
     Route: 042
     Dates: start: 20150105, end: 20150105
  9. RITUXIMAB. [Suspect]
     Active Substance: RITUXIMAB
     Route: 042
     Dates: start: 20191011, end: 20191011
  10. VENETOCLAX. [Suspect]
     Active Substance: VENETOCLAX
     Dosage: 27 JUL 2020 MOST RECENT DOSE PRIOR TO AE
     Route: 048
     Dates: start: 20190905, end: 20190912
  11. VENETOCLAX. [Suspect]
     Active Substance: VENETOCLAX
     Indication: CHRONIC LYMPHOCYTIC LEUKAEMIA
     Dosage: 27 JUL 2020 MOST RECENT DOSE PRIOR TO AE
     Route: 048
     Dates: start: 20141127, end: 20141204
  12. VENETOCLAX. [Suspect]
     Active Substance: VENETOCLAX
     Dosage: 27 JUL 2020 MOST RECENT DOSE PRIOR TO AE
     Route: 048
     Dates: start: 20190920, end: 20190926
  13. RITUXIMAB. [Suspect]
     Active Substance: RITUXIMAB
     Dosage: D1 C2?6
     Route: 042
     Dates: start: 20150202, end: 20150525
  14. VENETOCLAX. [Suspect]
     Active Substance: VENETOCLAX
     Dosage: 27 JUL 2020 MOST RECENT DOSE PRIOR TO AE
     Route: 048
     Dates: start: 20141215, end: 20141221
  15. VENETOCLAX. [Suspect]
     Active Substance: VENETOCLAX
     Dosage: 27 JUL 2020 MOST RECENT DOSE PRIOR TO AE
     Route: 048
     Dates: start: 20141205, end: 20141214
  16. VENETOCLAX. [Suspect]
     Active Substance: VENETOCLAX
     Dosage: 27 JUL 2020 MOST RECENT DOSE PRIOR TO AE
     Route: 048
     Dates: start: 20191004, end: 20191010
  17. AGEN [Concomitant]
     Active Substance: AMLODIPINE BESYLATE
     Indication: HYPERTENSION
     Dates: start: 20141203

REACTIONS (1)
  - Pneumonia [Recovered/Resolved]

NARRATIVE: CASE EVENT DATE: 20200728
